FAERS Safety Report 4340122-7 (Version None)
Quarter: 2004Q2

REPORT INFORMATION
  Report Type: 
  Country: None (occurrence: None)
  Receive Date: 20040416
  Receipt Date: 20040331
  Transmission Date: 20050107
  Serious: Yes (Hospitalization)
  Sender: FDA-Public Use
  Company Number: PHBS2004JP04444

PATIENT
  Age: 37 Year
  Sex: Female

DRUGS (1)
  1. PARLODEL [Suspect]
     Indication: BLOOD THYROID STIMULATING HORMONE ABNORMAL
     Route: 048

REACTIONS (3)
  - DELUSION [None]
  - HALLUCINATION [None]
  - SCHIZOPHRENIA [None]
